FAERS Safety Report 25929118 (Version 1)
Quarter: 2025Q4

REPORT INFORMATION
  Report Type: Spontaneous
  Country: US (occurrence: US)
  Receive Date: 20251016
  Receipt Date: 20251016
  Transmission Date: 20260117
  Serious: No
  Sender: ORPHALAN
  Company Number: US-ORPHALAN-US-ORP-25-00011

PATIENT
  Age: 26 Year
  Sex: Male

DRUGS (1)
  1. CUVRIOR [Suspect]
     Active Substance: TRIENTINE TETRAHYDROCHLORIDE
     Indication: Hepato-lenticular degeneration
     Dosage: 300 MILLIGRAM, BID
     Route: 048
     Dates: start: 20241115, end: 20241212

REACTIONS (5)
  - Skin burning sensation [Recovered/Resolved with Sequelae]
  - Pruritus [Recovered/Resolved with Sequelae]
  - Urticaria [Recovered/Resolved with Sequelae]
  - Rash [Recovered/Resolved with Sequelae]
  - Eczema [Recovered/Resolved with Sequelae]

NARRATIVE: CASE EVENT DATE: 20241120
